FAERS Safety Report 9357323 (Version 1)
Quarter: 2013Q2

REPORT INFORMATION
  Report Type: Spontaneous
  Country: JP (occurrence: JP)
  Receive Date: 20130620
  Receipt Date: 20130620
  Transmission Date: 20140414
  Serious: Yes (Life-Threatening)
  Sender: FDA-Public Use
  Company Number: JP-ROCHE-1237031

PATIENT
  Age: 78 Year
  Sex: Female
  Weight: 29 kg

DRUGS (10)
  1. ACTEMRA [Suspect]
     Indication: RHEUMATOID VASCULITIS
     Route: 041
     Dates: start: 20130214, end: 20130214
  2. RHEUMATREX [Suspect]
     Indication: RHEUMATOID VASCULITIS
     Route: 048
     Dates: start: 20120402, end: 20120605
  3. RHEUMATREX [Suspect]
     Indication: RHEUMATOID VASCULITIS
     Route: 048
     Dates: start: 20120606, end: 20130311
  4. PROGRAF [Suspect]
     Indication: RHEUMATOID VASCULITIS
     Route: 048
     Dates: start: 20120308, end: 20130311
  5. PLETAAL [Concomitant]
     Indication: PERIPHERAL ARTERIAL OCCLUSIVE DISEASE
     Route: 048
     Dates: end: 20130311
  6. PREDONINE [Concomitant]
     Indication: RHEUMATOID VASCULITIS
     Route: 048
     Dates: end: 20130311
  7. BARACLUDE [Concomitant]
     Indication: VIRAL HEPATITIS CARRIER
     Route: 048
     Dates: start: 20120223
  8. PURSENNID [Concomitant]
     Indication: CONSTIPATION
     Route: 048
  9. XYZAL [Concomitant]
     Indication: ECZEMA
     Route: 048
  10. LOXONIN [Concomitant]
     Indication: PAIN
     Route: 048

REACTIONS (2)
  - Pancytopenia [Recovered/Resolved]
  - Sepsis [Recovered/Resolved]
